FAERS Safety Report 4706115-2 (Version None)
Quarter: 2005Q2

REPORT INFORMATION
  Report Type: 
  Country: None (occurrence: None)
  Receive Date: 20050627
  Receipt Date: 20041216
  Transmission Date: 20051028
  Serious: Yes (Hospitalization)
  Sender: FDA-Public Use
  Company Number: US-JNJFOC-20040900839

PATIENT
  Age: 52 Year
  Sex: Female
  Weight: 103.4201 kg

DRUGS (11)
  1. DURAGESIC-100 [Suspect]
     Indication: PAIN
     Dosage: 25 UG/HR, 1 IN 72 HOUR, TRANSDERMAL;  50 UG/HR, TRANSDERMAL
     Route: 062
     Dates: start: 20040421
  2. DURAGESIC-100 [Suspect]
     Indication: PAIN
     Dosage: 25 UG/HR, 1 IN 72 HOUR, TRANSDERMAL;  50 UG/HR, TRANSDERMAL
     Route: 062
     Dates: start: 20040714
  3. LOTENSIN [Concomitant]
  4. ATENOLOL [Concomitant]
  5. ALLEGRA [Concomitant]
  6. FLONASE (FLUTICASONE PROPIONATE) SPRAY [Concomitant]
  7. NEURONTIN [Concomitant]
  8. SOMA [Concomitant]
  9. XANAX [Concomitant]
  10. MOBIC [Concomitant]
  11. BEXTRA [Concomitant]

REACTIONS (4)
  - BLOOD PRESSURE INCREASED [None]
  - BRADYCARDIA [None]
  - CHEST PAIN [None]
  - HEADACHE [None]
